FAERS Safety Report 5766361-6 (Version None)
Quarter: 2008Q2

REPORT INFORMATION
  Report Type: 
  Country: None (occurrence: None)
  Receive Date: 20080611
  Receipt Date: 20080604
  Transmission Date: 20081010
  Serious: Yes (Other)
  Sender: FDA-Public Use
  Company Number: DE-GENENTECH-262284

PATIENT
  Age: 42 Year
  Sex: Female

DRUGS (2)
  1. RAPTIVA [Suspect]
     Indication: BUTTERFLY RASH
     Dosage: 0.7 MG/KG, 1/WEEK
     Route: 058
  2. PREDNISOLONE [Concomitant]
     Indication: BUTTERFLY RASH
     Dosage: 5 MG, QD

REACTIONS (2)
  - LUPUS NEPHRITIS [None]
  - SYSTEMIC LUPUS ERYTHEMATOSUS [None]
